FAERS Safety Report 25298388 (Version 1)
Quarter: 2025Q2

REPORT INFORMATION
  Report Type: Spontaneous
  Country: US (occurrence: US)
  Receive Date: 20250512
  Receipt Date: 20250512
  Transmission Date: 20250717
  Serious: Yes (Other)
  Sender: SHILPA MEDICARE
  Company Number: US-KOANAAP-SML-US-2025-00253

PATIENT
  Age: 56 Year
  Sex: Male

DRUGS (5)
  1. IRINOTECAN [Suspect]
     Active Substance: IRINOTECAN
     Indication: Rectal adenocarcinoma
  2. CETUXIMAB [Concomitant]
     Active Substance: CETUXIMAB
     Indication: Rectal adenocarcinoma
  3. FLOXURIDINE [Concomitant]
     Active Substance: FLOXURIDINE
     Indication: Rectal adenocarcinoma
  4. FLUOROURACIL [Concomitant]
     Active Substance: FLUOROURACIL
     Indication: Rectal adenocarcinoma
  5. LEUCOVORIN [Concomitant]
     Active Substance: LEUCOVORIN\LEUCOVORIN CALCIUM
     Indication: Rectal adenocarcinoma

REACTIONS (2)
  - Toxicity to various agents [Unknown]
  - Diarrhoea [Recovering/Resolving]
